FAERS Safety Report 7704765-2 (Version None)
Quarter: 2011Q3

REPORT INFORMATION
  Report Type: 
  Country: None (occurrence: None)
  Receive Date: 20110823
  Receipt Date: 20110812
  Transmission Date: 20111222
  Serious: Yes (Hospitalization)
  Sender: FDA-Public Use
  Company Number: PHHY2011GB74502

PATIENT
  Age: 68 Year
  Sex: Female

DRUGS (8)
  1. RAMIPRIL [Concomitant]
  2. ACETYLSALICYLIC ACID SRT [Suspect]
     Indication: CARDIOVASCULAR DISORDER
     Dosage: 75 MG, QD
     Route: 048
     Dates: end: 20101003
  3. MOTRIN [Suspect]
     Indication: POSTOPERATIVE ANALGESIA
     Dosage: 200 MG, TID
     Route: 048
     Dates: start: 20101003, end: 20101003
  4. RIVAROXABAN [Suspect]
     Indication: THROMBOSIS PROPHYLAXIS
     Dosage: 10 MG, BID
     Route: 048
     Dates: start: 20101002, end: 20101003
  5. ACETAMINOPHEN AND CODEINE PHOSPHATE [Concomitant]
  6. LEVOTHYROXINE SODIUM [Concomitant]
  7. MIRTAZAPINE [Concomitant]
  8. ATENOLOL [Concomitant]

REACTIONS (3)
  - HYPOTENSION [None]
  - UPPER GASTROINTESTINAL HAEMORRHAGE [None]
  - OESOPHAGITIS [None]
